FAERS Safety Report 9116609 (Version 1)
Quarter: 2013Q1

REPORT INFORMATION
  Report Type: Spontaneous
  Country: AU (occurrence: AU)
  Receive Date: 20130225
  Receipt Date: 20130225
  Transmission Date: 20140127
  Serious: Yes (Other)
  Sender: FDA-Public Use
  Company Number: AU-PFIZER INC-2013062706

PATIENT
  Age: 57 Year
  Sex: Female

DRUGS (2)
  1. CONJUGATED ESTROGENS [Suspect]
     Dosage: 5 MG, UNK
  2. CONJUGATED ESTROGENS [Suspect]
     Dosage: 2.5 MG, UNK

REACTIONS (6)
  - Hiatus hernia [Unknown]
  - Chest pain [Unknown]
  - Dyspnoea [Unknown]
  - Fluid retention [Unknown]
  - Weight increased [Unknown]
  - Night sweats [Unknown]
